FAERS Safety Report 13888589 (Version 1)
Quarter: 2017Q3

REPORT INFORMATION
  Report Type: Spontaneous
  Country: IL (occurrence: IL)
  Receive Date: 20170821
  Receipt Date: 20170821
  Transmission Date: 20171127
  Serious: Yes (Hospitalization)
  Sender: FDA-Public Use
  Company Number: IL-PURDUE PHARMA-GBR-2017-0048047

PATIENT
  Age: 72 Year
  Sex: Female
  Weight: 117 kg

DRUGS (14)
  1. TARGIN [Suspect]
     Active Substance: NALOXONE HYDROCHLORIDE\OXYCODONE HYDROCHLORIDE
     Indication: PAIN
     Dosage: 10 MG, BID
     Route: 048
     Dates: start: 20170801, end: 20170801
  2. AMLODIPINE [Concomitant]
     Active Substance: AMLODIPINE BESYLATE
  3. NEXIUM [Concomitant]
     Active Substance: ESOMEPRAZOLE MAGNESIUM
  4. FASLODEX [Concomitant]
     Active Substance: FULVESTRANT
  5. ACAMOL [Concomitant]
     Active Substance: ACETAMINOPHEN
  6. CARVEDILOL. [Concomitant]
     Active Substance: CARVEDILOL
  7. MICROPIRIN [Concomitant]
     Active Substance: ASPIRIN
  8. TERIL [Concomitant]
  9. VALSARTAN. [Concomitant]
     Active Substance: VALSARTAN
  10. ALDOSPIRONE [Concomitant]
     Active Substance: SPIRONOLACTONE
  11. ROSUVASTATIN. [Concomitant]
     Active Substance: ROSUVASTATIN
  12. FUSID                              /00032601/ [Concomitant]
     Active Substance: FUROSEMIDE
  13. EUTHYROX [Concomitant]
     Active Substance: LEVOTHYROXINE SODIUM
  14. LORIVAN [Concomitant]

REACTIONS (1)
  - Depressed level of consciousness [Recovered/Resolved]

NARRATIVE: CASE EVENT DATE: 20170802
